FAERS Safety Report 11348293 (Version 1)
Quarter: 2015Q3

REPORT INFORMATION
  Report Type: Spontaneous
  Country: US (occurrence: US)
  Receive Date: 20150806
  Receipt Date: 20150806
  Transmission Date: 20151125
  Serious: No
  Sender: FDA-Public Use
  Company Number: US-ABBVIE-14P-163-1289216-00

PATIENT
  Age: 81 Year
  Sex: Male
  Weight: 90.8 kg

DRUGS (1)
  1. DEPAKOTE ER [Suspect]
     Active Substance: DIVALPROEX SODIUM
     Indication: DEMENTIA
     Dosage: AT BEDTIME
     Dates: start: 20140923

REACTIONS (2)
  - Off label use [Unknown]
  - Tremor [Recovered/Resolved]

NARRATIVE: CASE EVENT DATE: 20140923
